APPROVED DRUG PRODUCT: VIBRAMYCIN
Active Ingredient: DOXYCYCLINE CALCIUM
Strength: EQ 50MG BASE/5ML
Dosage Form/Route: SUSPENSION;ORAL
Application: N050480 | Product #001
Applicant: PFIZER LABORATORIES DIV PFIZER INC
Approved: Approved Prior to Jan 1, 1982 | RLD: Yes | RS: No | Type: DISCN